FAERS Safety Report 8396548-8 (Version None)
Quarter: 2012Q2

REPORT INFORMATION
  Report Type: 
  Country: None (occurrence: None)
  Receive Date: 20120530
  Receipt Date: 20120522
  Transmission Date: 20120825
  Serious: Yes (Other)
  Sender: FDA-Public Use
  Company Number: JP-NAPPMUNDI-MAG-2012-0002177

PATIENT
  Age: 81 Year
  Sex: Female

DRUGS (3)
  1. LOXONIN [Concomitant]
     Route: 048
  2. BUPRENORPHINE [Suspect]
     Indication: PAIN
     Dosage: 5 MCG, Q1H
     Route: 062
     Dates: start: 20120416, end: 20120418
  3. LYRICA [Concomitant]
     Route: 048

REACTIONS (1)
  - PULMONARY EMBOLISM [None]
